FAERS Safety Report 5055156-7 (Version None)
Quarter: 2006Q3

REPORT INFORMATION
  Report Type: 
  Country: None (occurrence: None)
  Receive Date: 20060714
  Receipt Date: 20060414
  Transmission Date: 20061208
  Serious: Yes (Death, Other)
  Sender: FDA-Public Use
  Company Number: THQ2005A01108

PATIENT
  Age: 72 Year
  Sex: 0

DRUGS (2)
  1. LEUPROLIDE ACETATE [Suspect]
     Dosage: 22.5 MG (22.5 MG, 1 IN 3 M)
     Dates: start: 20050809, end: 20051109
  2. ZOLEDRONIC ACID [Suspect]
     Dosage: 4.0 MG PER 100 ML
     Dates: start: 20050809, end: 20051109

REACTIONS (2)
  - METASTASES TO OESOPHAGUS [None]
  - OESOPHAGEAL ADENOCARCINOMA [None]
